FAERS Safety Report 4376172-4 (Version None)
Quarter: 2004Q2

REPORT INFORMATION
  Report Type: 
  Country: None (occurrence: None)
  Receive Date: 20040610
  Receipt Date: 20040610
  Transmission Date: 20050107
  Serious: No
  Sender: FDA-Public Use
  Company Number: None

PATIENT
  Sex: Female
  Weight: 76 kg

DRUGS (1)
  1. VANCOMYCIN [Suspect]
     Indication: CELLULITIS
     Dosage: 1.25 G QD
     Dates: start: 20040527

REACTIONS (4)
  - CONFUSIONAL STATE [None]
  - HEART RATE INCREASED [None]
  - RESPIRATORY RATE DECREASED [None]
  - RETCHING [None]
